FAERS Safety Report 8068562-3 (Version None)
Quarter: 2012Q1

REPORT INFORMATION
  Report Type: 
  Country: None (occurrence: None)
  Receive Date: 20120124
  Receipt Date: 20111114
  Transmission Date: 20120608
  Serious: No
  Sender: FDA-Public Use
  Company Number: US-AMGEN-USASP2011044944

PATIENT
  Age: 85 Year
  Sex: Female
  Weight: 65 kg

DRUGS (17)
  1. CALCIUM [Concomitant]
  2. DILTIAZEM [Concomitant]
     Dosage: 1 MG, QD
  3. PRAVASTATIN [Concomitant]
     Dosage: 1 MG, QD
     Dates: start: 20110801
  4. PROLIA [Suspect]
     Indication: OSTEOPOROSIS POSTMENOPAUSAL
     Dosage: 60 MG, Q6MO
     Dates: start: 20110710
  5. REQUIP [Concomitant]
  6. LOSARTAN POTASSIUM [Concomitant]
     Dosage: 1 MG, QD
  7. FUROSEMIDE [Concomitant]
     Dosage: 1 MG, QD
  8. ZOCOR [Concomitant]
     Dosage: 1 MG, QD
     Dates: end: 20110801
  9. PROVENTIL [Concomitant]
  10. SINGULAIR [Concomitant]
     Dosage: 1 MG, QD
  11. IBUPROFEN (ADVIL) [Concomitant]
     Indication: PAIN
     Dosage: UNK
  12. FLOVENT [Concomitant]
     Indication: ASTHMA
     Dosage: UNK UNK, BID
  13. VITAMIN D [Concomitant]
  14. XOPENEX [Concomitant]
  15. NEXIUM [Concomitant]
  16. CALCIUM CARBONATE [Concomitant]
     Dosage: UNK
  17. ZOLPIDEM [Concomitant]

REACTIONS (2)
  - PAIN IN EXTREMITY [None]
  - ASTHMA [None]
